FAERS Safety Report 12310824 (Version 1)
Quarter: 2016Q2

REPORT INFORMATION
  Report Type: Spontaneous
  Country: PL (occurrence: PL)
  Receive Date: 20160427
  Receipt Date: 20160427
  Transmission Date: 20160815
  Serious: Yes (Death, Hospitalization, Other)
  Sender: FDA-Public Use
  Company Number: PL-MYLANLABS-2016M1016382

PATIENT

DRUGS (3)
  1. GABAPENTIN. [Suspect]
     Active Substance: GABAPENTIN
     Indication: PAIN
     Dosage: 900 MG, QD
  2. FENTANYL. [Suspect]
     Active Substance: FENTANYL
     Indication: PAIN
     Dosage: 50?G/H
     Route: 062
  3. PARACETAMOL,TRAMADOL MYLAN [Suspect]
     Active Substance: ACETAMINOPHEN\TRAMADOL HYDROCHLORIDE
     Indication: PAIN
     Dosage: 37.5 MG + 325 MG

REACTIONS (15)
  - Chronic kidney disease [Unknown]
  - Vena cava thrombosis [Unknown]
  - Immunodeficiency [Unknown]
  - Plasma cell myeloma [Unknown]
  - Lower respiratory tract infection [Unknown]
  - Depressed mood [Unknown]
  - Confusional state [Unknown]
  - Thrombocytopenia [Unknown]
  - Normochromic normocytic anaemia [Unknown]
  - Nausea [Unknown]
  - Dyspepsia [Unknown]
  - Pelvic venous thrombosis [Unknown]
  - Affect lability [Unknown]
  - Pneumonia [Fatal]
  - Vomiting [Unknown]
